FAERS Safety Report 4377947-8 (Version None)
Quarter: 2004Q2

REPORT INFORMATION
  Report Type: 
  Country: None (occurrence: None)
  Receive Date: 20040614
  Receipt Date: 20040603
  Transmission Date: 20050107
  Serious: Yes (Hospitalization)
  Sender: FDA-Public Use
  Company Number: 200411925JP

PATIENT
  Age: 53 Year
  Sex: Female

DRUGS (3)
  1. KETEK [Suspect]
     Indication: NASOPHARYNGITIS
     Route: 048
     Dates: start: 20040506, end: 20040510
  2. ASTHMA [Concomitant]
     Indication: NASOPHARYNGITIS
     Route: 048
     Dates: start: 20040506, end: 20040521
  3. DASEN [Concomitant]
     Indication: PRODUCTIVE COUGH
     Route: 048
     Dates: start: 20040506, end: 20040521

REACTIONS (1)
  - EOSINOPHILIC PNEUMONIA [None]
